FAERS Safety Report 11972154 (Version 2)
Quarter: 2016Q1

REPORT INFORMATION
  Report Type: Spontaneous
  Country: JP (occurrence: JP)
  Receive Date: 20160128
  Receipt Date: 20160211
  Transmission Date: 20160526
  Serious: Yes (Other)
  Sender: FDA-Public Use
  Company Number: PHJP2015JP020817

PATIENT
  Age: 39 Year
  Sex: Female
  Weight: 50 kg

DRUGS (1)
  1. NEORAL [Suspect]
     Active Substance: CYCLOSPORINE
     Indication: PSORIASIS
     Dosage: 100 MG, QD
     Route: 048
     Dates: start: 20151102, end: 20151102

REACTIONS (7)
  - Abdominal pain upper [Recovered/Resolved]
  - Depressed level of consciousness [Recovered/Resolved]
  - Hypoaesthesia [Recovered/Resolved]
  - Vomiting [Recovered/Resolved]
  - Nausea [Recovered/Resolved]
  - Blood pressure systolic decreased [Recovered/Resolved]
  - Oxygen saturation immeasurable [Recovered/Resolved]

NARRATIVE: CASE EVENT DATE: 20151102
